FAERS Safety Report 10461287 (Version 1)
Quarter: 2014Q3

REPORT INFORMATION
  Report Type: Spontaneous
  Country: IN (occurrence: IN)
  Receive Date: 20140918
  Receipt Date: 20140918
  Transmission Date: 20150326
  Serious: Yes (Life-Threatening, Hospitalization)
  Sender: FDA-Public Use
  Company Number: PHHY2014IN119698

PATIENT
  Age: 19 Year
  Sex: Male

DRUGS (2)
  1. DICLOFENAC [Suspect]
     Active Substance: DICLOFENAC
     Indication: PYREXIA
     Dosage: UNK
     Route: 030
     Dates: start: 200809, end: 200809
  2. DICLOFENAC [Suspect]
     Active Substance: DICLOFENAC
     Indication: PAIN

REACTIONS (9)
  - Iatrogenic infection [Recovered/Resolved]
  - Swelling [Recovered/Resolved]
  - Injection site abscess [Recovered/Resolved]
  - Pain [Recovered/Resolved]
  - Inflammation [Recovered/Resolved]
  - Gait disturbance [Recovered/Resolved]
  - Gas gangrene [Recovered/Resolved]
  - Pyrexia [Recovered/Resolved]
  - Clostridial infection [Recovered/Resolved]

NARRATIVE: CASE EVENT DATE: 200809
